FAERS Safety Report 6997525-1 (Version None)
Quarter: 2010Q3

REPORT INFORMATION
  Report Type: 
  Country: None (occurrence: None)
  Receive Date: 20100918
  Receipt Date: 20091022
  Transmission Date: 20110219
  Serious: No
  Sender: FDA-Public Use
  Company Number: US-WYE-H11821209

PATIENT
  Age: 53 Year
  Sex: Female

DRUGS (7)
  1. PRISTIQ [Suspect]
     Indication: FIBROMYALGIA
     Route: 048
     Dates: start: 20090701
  2. TERBINAFINE [Concomitant]
  3. IBUPROFEN [Concomitant]
  4. PRAVASTATIN [Concomitant]
  5. METFORMIN [Concomitant]
  6. ESTRADIOL [Concomitant]
  7. THYROID TAB [Concomitant]

REACTIONS (2)
  - ABNORMAL BEHAVIOUR [None]
  - DRUG INEFFECTIVE FOR UNAPPROVED INDICATION [None]
